FAERS Safety Report 21042635 (Version 1)
Quarter: 2022Q3

REPORT INFORMATION
  Report Type: Spontaneous
  Country: US (occurrence: None)
  Receive Date: 20220703
  Receipt Date: 20220703
  Transmission Date: 20221026
  Serious: No
  Sender: FDA-Public Use
  Company Number: None

PATIENT
  Age: 52 Year
  Sex: Male
  Weight: 76.2 kg

DRUGS (1)
  1. BEBTELOVIMAB [Suspect]
     Active Substance: BEBTELOVIMAB
     Indication: COVID-19
     Dosage: OTHER FREQUENCY : ONCE;?
     Route: 040
     Dates: start: 20220703, end: 20220703

REACTIONS (6)
  - Chest discomfort [None]
  - Dyspnoea [None]
  - Heart rate increased [None]
  - Heart rate decreased [None]
  - Nausea [None]
  - Pallor [None]

NARRATIVE: CASE EVENT DATE: 20220703
